FAERS Safety Report 8214107-4 (Version None)
Quarter: 2012Q1

REPORT INFORMATION
  Report Type: 
  Country: None (occurrence: None)
  Receive Date: 20120314
  Receipt Date: 20120314
  Transmission Date: 20120608
  Serious: Yes (Hospitalization)
  Sender: FDA-Public Use
  Company Number: None

PATIENT
  Age: 80 Year
  Sex: Female
  Weight: 87 kg

DRUGS (8)
  1. HUMULIN R [Concomitant]
  2. VIT D3 [Concomitant]
  3. PLAVIX [Concomitant]
  4. LISINOPRIL AND HYDROCHLOROTHIAZIDE [Suspect]
     Indication: HYPERTENSION
     Dosage: 20 - 25 MG DAILY PO CHRONIC
     Route: 048
  5. ASPIRIN [Concomitant]
  6. ACTOS [Concomitant]
  7. LIPITOR [Concomitant]
  8. SYNTHROID [Concomitant]

REACTIONS (2)
  - HYPOGLYCAEMIA [None]
  - FATIGUE [None]
